FAERS Safety Report 19277226 (Version 1)
Quarter: 2021Q2

REPORT INFORMATION
  Report Type: Spontaneous
  Country: JP (occurrence: JP)
  Receive Date: 20210520
  Receipt Date: 20210520
  Transmission Date: 20210717
  Serious: Yes (Other)
  Sender: FDA-Public Use
  Company Number: JP-AUROBINDO-AUR-APL-2021-020513

PATIENT
  Age: 50 Year
  Sex: Male
  Weight: 45.5 kg

DRUGS (4)
  1. MELPHALAN. [Suspect]
     Active Substance: MELPHALAN
     Indication: PRODUCT USED FOR UNKNOWN INDICATION
     Dosage: 140 MILLIGRAM/SQ. METER
     Route: 065
  2. FILGRASTIM [Suspect]
     Active Substance: FILGRASTIM
     Indication: HAEMATOPOIETIC STEM CELL MOBILISATION
     Dosage: 600 MICROGRAM, ONCE A DAY
     Route: 058
  3. DEXAMETHAZONE [Suspect]
     Active Substance: DEXAMETHASONE
     Indication: PLASMA CELL MYELOMA
     Dosage: 40 MILLIGRAM, EVERY WEEK
     Route: 065
  4. BORTEZOMIB. [Suspect]
     Active Substance: BORTEZOMIB
     Indication: PLASMA CELL MYELOMA
     Dosage: 1.3 MG/M2, ONCE A DAY,THREE CYCLES.
     Route: 065

REACTIONS (7)
  - Anaemia [Unknown]
  - Syncope [Unknown]
  - Diarrhoea [Unknown]
  - Splenic haemorrhage [Not Recovered/Not Resolved]
  - Urticaria [Recovered/Resolved]
  - Splenic haematoma [Not Recovered/Not Resolved]
  - Splenic rupture [Not Recovered/Not Resolved]
